FAERS Safety Report 11526026 (Version 5)
Quarter: 2016Q1

REPORT INFORMATION
  Report Type: Report from Study
  Country: JP (occurrence: JP)
  Receive Date: 20150918
  Receipt Date: 20160204
  Transmission Date: 20160525
  Serious: Yes (Hospitalization)
  Sender: FDA-Public Use
  Company Number: PHJP2015JP016073

PATIENT
  Age: 33 Year
  Sex: Male
  Weight: 72 kg

DRUGS (12)
  1. PREDONINE [Concomitant]
     Active Substance: PREDNISOLONE\PREDNISOLONE ACETATE\PREDNISOLONE SODIUM SUCCINATE
     Indication: HEART TRANSPLANT
     Dosage: 7.5 MG, UNK
     Route: 065
     Dates: start: 20140605
  2. CERTICAN [Suspect]
     Active Substance: EVEROLIMUS
     Dosage: 2.25 MG, UNK
     Route: 048
     Dates: start: 20141121, end: 20141204
  3. PROGRAF [Concomitant]
     Active Substance: TACROLIMUS\TACROLIMUS ANHYDROUS
     Indication: HEART TRANSPLANT
     Dosage: 1.5 MG, UNK
     Route: 065
     Dates: start: 20141107, end: 20141117
  4. PROGRAF [Concomitant]
     Active Substance: TACROLIMUS\TACROLIMUS ANHYDROUS
     Dosage: 2.25 MG, UNK
     Route: 065
     Dates: start: 20141121, end: 20141204
  5. MYCOPHENOLATE [Concomitant]
     Active Substance: MYCOPHENOLIC ACID
     Indication: HEART TRANSPLANT
     Dosage: 1250 MG, UNK
     Route: 048
     Dates: start: 20140515
  6. ZETIA [Suspect]
     Active Substance: EZETIMIBE
     Indication: HYPERLIPIDAEMIA
     Dosage: 10 MG, UNK
     Route: 048
     Dates: start: 20141127, end: 20141202
  7. PROGRAF [Concomitant]
     Active Substance: TACROLIMUS\TACROLIMUS ANHYDROUS
     Dosage: 2.0 MG, UNK
     Route: 065
     Dates: start: 20141118, end: 20141120
  8. BAYASPIRIN [Concomitant]
     Active Substance: ASPIRIN
     Indication: PROPHYLAXIS
     Dosage: 100 MG, UNK
     Route: 048
     Dates: start: 20131120
  9. ALFAROL [Concomitant]
     Active Substance: ALFACALCIDOL
     Indication: OSTEOPOROSIS
     Dosage: 0.5 UG, UNK
     Route: 048
     Dates: start: 20131210
  10. CERTICAN [Suspect]
     Active Substance: EVEROLIMUS
     Indication: HEART TRANSPLANT
     Dosage: 1.5 MG, UNK
     Route: 048
     Dates: start: 20141107, end: 20141117
  11. CERTICAN [Suspect]
     Active Substance: EVEROLIMUS
     Indication: PROPHYLAXIS AGAINST TRANSPLANT REJECTION
     Dosage: 2.0 MG, UNK
     Route: 048
     Dates: start: 20141118, end: 20141120
  12. LIVALO [Suspect]
     Active Substance: PITAVASTATIN CALCIUM
     Indication: HYPERLIPIDAEMIA
     Dosage: 2 MG, UNK
     Route: 048
     Dates: start: 20131120, end: 20141202

REACTIONS (1)
  - Eosinophilic myocarditis [Recovered/Resolved]

NARRATIVE: CASE EVENT DATE: 20141201
